FAERS Safety Report 7764747-1 (Version None)
Quarter: 2011Q3

REPORT INFORMATION
  Report Type: 
  Country: None (occurrence: None)
  Receive Date: 20110921
  Receipt Date: 20110921
  Transmission Date: 20111222
  Serious: Yes (Other)
  Sender: FDA-Public Use
  Company Number: None

PATIENT
  Sex: Male
  Weight: 94.6 kg

DRUGS (2)
  1. OMNIPAQUE 350 [Suspect]
     Indication: ABDOMEN SCAN
     Dosage: 100ML
  2. GADOLINIUM [Concomitant]
     Dosage: 19ML

REACTIONS (2)
  - RENAL FAILURE ACUTE [None]
  - NEPHROPATHY TOXIC [None]
